FAERS Safety Report 6175559-7 (Version None)
Quarter: 2009Q2

REPORT INFORMATION
  Report Type: 
  Country: None (occurrence: None)
  Receive Date: 20090429
  Receipt Date: 20090415
  Transmission Date: 20091009
  Serious: Yes (Other)
  Sender: FDA-Public Use
  Company Number: 2009SP008147

PATIENT
  Age: 69 Year
  Sex: Female

DRUGS (6)
  1. PEG-INTRON [Suspect]
     Indication: HEPATITIS C
     Dosage: 180 MCG; QW; SC
     Route: 058
     Dates: start: 20080924
  2. RIBAVIRIN [Suspect]
     Indication: HEPATITIS C
     Dosage: PO; 800 MG; QD; PO
     Route: 048
     Dates: start: 20080924, end: 20081118
  3. RIBAVIRIN [Suspect]
     Indication: HEPATITIS C
     Dosage: PO; 800 MG; QD; PO
     Route: 048
     Dates: start: 20081119
  4. BLINDED ELTROMBOPAG (ELTROMBOPAG) [Suspect]
     Indication: THROMBOCYTOPENIA
     Dosage: PO; 100 MG; QD; PO
     Route: 048
     Dates: start: 20080924, end: 20090210
  5. BLINDED ELTROMBOPAG (ELTROMBOPAG) [Suspect]
     Indication: THROMBOCYTOPENIA
     Dosage: PO; 100 MG; QD; PO
     Route: 048
     Dates: start: 20090211
  6. ELTROMBOPAG (ELTROMBOPAG) [Suspect]
     Indication: THROMBOCYTOPENIA
     Dosage: 25 MG; QD; PO
     Route: 048
     Dates: start: 20080910, end: 20080923

REACTIONS (1)
  - ASCITES [None]
